FAERS Safety Report 11775371 (Version 2)
Quarter: 2015Q4

REPORT INFORMATION
  Report Type: Spontaneous
  Country: JP (occurrence: JP)
  Receive Date: 20151125
  Receipt Date: 20151209
  Transmission Date: 20160304
  Serious: Yes (Other)
  Sender: FDA-Public Use
  Company Number: JP-MYLANLABS-2015M1041548

PATIENT

DRUGS (2)
  1. CLOPIDOGREL [Suspect]
     Active Substance: CLOPIDOGREL BISULFATE
     Indication: ANTIPLATELET THERAPY
     Dosage: 6 DUAL ANTIPLATELET TABLETS TAKEN AS A LOADING DOSE
     Route: 048
  2. ASPIRIN                            /00002701/ [Concomitant]
     Active Substance: ASPIRIN
     Indication: ANTIPLATELET THERAPY
     Dosage: 6 DUAL ANTIPLATELET TABLETS TAKEN AS A LOADING DOSE
     Route: 048

REACTIONS (2)
  - Erosive oesophagitis [Recovering/Resolving]
  - Drug administration error [Recovered/Resolved]
